FAERS Safety Report 9341645 (Version 2)
Quarter: 2013Q2

REPORT INFORMATION
  Report Type: Spontaneous
  Country: FR (occurrence: None)
  Receive Date: 20130606
  Receipt Date: 20130606
  Transmission Date: 20140414
  Serious: Yes (Disabling)
  Sender: FDA-Public Use
  Company Number: 2013-1602

PATIENT
  Age: 4 Year
  Sex: Female
  Weight: 13.2 kg

DRUGS (2)
  1. DYSPORT [Suspect]
     Indication: MUSCLE SPASTICITY
     Dosage: 200 UNITS (200 UNITS, 1 IN 1 D CYCLE (S),
     Route: 030
     Dates: start: 20130124, end: 20130124
  2. LIORESAL [Concomitant]

REACTIONS (5)
  - Hypotonia [None]
  - Gait disturbance [None]
  - Dysphagia [None]
  - Disability [None]
  - Constipation [None]
